FAERS Safety Report 21458967 (Version 4)
Quarter: 2022Q4

REPORT INFORMATION
  Report Type: Report from Study
  Country: CA (occurrence: CA)
  Receive Date: 20221014
  Receipt Date: 20221122
  Transmission Date: 20230113
  Serious: Yes (Other)
  Sender: FDA-Public Use
  Company Number: CA-BRISTOL-MYERS SQUIBB COMPANY-2022-120440

PATIENT
  Age: 46 Year
  Sex: Female
  Weight: 50 kg

DRUGS (2)
  1. OPDIVO [Suspect]
     Active Substance: NIVOLUMAB
     Indication: Gastric cancer
     Route: 042
     Dates: start: 20220629, end: 20221013
  2. OPDIVO [Suspect]
     Active Substance: NIVOLUMAB
     Route: 042
     Dates: start: 20221026

REACTIONS (3)
  - Weight increased [Unknown]
  - Thrombocytopenia [Unknown]
  - Intentional product use issue [Unknown]
